FAERS Safety Report 11252762 (Version 2)
Quarter: 2015Q4

REPORT INFORMATION
  Report Type: Spontaneous
  Country: US (occurrence: US)
  Receive Date: 20150708
  Receipt Date: 20151105
  Transmission Date: 20160304
  Serious: No
  Sender: FDA-Public Use
  Company Number: US-MALLINCKRODT-T201404480

PATIENT
  Sex: Male
  Weight: 64 kg

DRUGS (10)
  1. NEURONTIN [Concomitant]
     Active Substance: GABAPENTIN
     Indication: ARTHRALGIA
     Dosage: 100-300 MG, PRN
  2. FENTANYL TRANSDERMAL SYSTEM [Suspect]
     Active Substance: FENTANYL
     Dosage: 25 UG/HR, TWO PATCHES Q72H
     Route: 062
     Dates: start: 2012
  3. RELAFEN [Concomitant]
     Active Substance: NABUMETONE
     Dosage: UNK, BID
  4. BACLOFEN. [Concomitant]
     Active Substance: BACLOFEN
     Dosage: UNK, BID
  5. FENTANYL TRANSDERMAL SYSTEM [Suspect]
     Active Substance: FENTANYL
     Dosage: 25 UG/HR, TWO PATCHES Q72H
     Route: 062
     Dates: start: 2012
  6. SOMA [Concomitant]
     Active Substance: CARISOPRODOL
     Dosage: UNK, QHS
  7. SKELAXIN [Concomitant]
     Active Substance: METAXALONE
  8. FENTANYL TRANSDERMAL SYSTEM [Suspect]
     Active Substance: FENTANYL
     Indication: BACK PAIN
     Dosage: 25 UG/HR, Q 72 HRS
     Route: 062
     Dates: start: 2011
  9. OXYCODONE [Suspect]
     Active Substance: OXYCODONE
     Indication: BREAKTHROUGH PAIN
     Dosage: 15 MG, QID
     Route: 048
     Dates: start: 2009
  10. XANAX [Concomitant]
     Active Substance: ALPRAZOLAM

REACTIONS (5)
  - Application site burn [Not Recovered/Not Resolved]
  - Blood testosterone decreased [Not Recovered/Not Resolved]
  - Application site scar [Not Recovered/Not Resolved]
  - Drug effect decreased [Not Recovered/Not Resolved]
  - Application site perspiration [Not Recovered/Not Resolved]

NARRATIVE: CASE EVENT DATE: 2015
